FAERS Safety Report 4616806-X (Version None)
Quarter: 2005Q2

REPORT INFORMATION
  Report Type: 
  Country: None (occurrence: None)
  Receive Date: 20050311
  Receipt Date: 20050207
  Transmission Date: 20051028
  Serious: Yes (Other)
  Sender: FDA-Public Use
  Company Number: 2005-00218

PATIENT
  Age: 76 Year
  Sex: Female
  Weight: 53 kg

DRUGS (3)
  1. VELCADE [Suspect]
     Indication: NON-HODGKIN'S LYMPHOMA
     Dosage: 2.50 MG, IV BOLUS
     Route: 040
     Dates: start: 20040913, end: 20041216
  2. VELCADE [Suspect]
     Indication: NON-HODGKIN'S LYMPHOMA
     Dosage: 2.50 MG, IV BOLUS
     Route: 040
     Dates: start: 20050128, end: 20050128
  3. DECADRON [Concomitant]

REACTIONS (1)
  - DIARRHOEA [None]
